FAERS Safety Report 8041289-X (Version None)
Quarter: 2012Q1

REPORT INFORMATION
  Report Type: 
  Country: None (occurrence: None)
  Receive Date: 20120112
  Receipt Date: 20120109
  Transmission Date: 20120608
  Serious: No
  Sender: FDA-Public Use
  Company Number: US-PFIZER INC-2012007784

PATIENT
  Sex: Male
  Weight: 99.773 kg

DRUGS (3)
  1. METOPROLOL [Concomitant]
     Dosage: UNK, DAILY
  2. LIPITOR [Concomitant]
     Dosage: UNK
     Route: 048
  3. CHANTIX [Suspect]
     Indication: SMOKING CESSATION THERAPY
     Dosage: 0.5 MG, DAILY
     Route: 048
     Dates: start: 20110101, end: 20120101

REACTIONS (2)
  - ABNORMAL DREAMS [None]
  - IRRITABILITY [None]
